FAERS Safety Report 23113870 (Version 1)
Quarter: 2023Q4

REPORT INFORMATION
  Report Type: Other
  Country: US (occurrence: None)
  Receive Date: 20231027
  Receipt Date: 20231027
  Transmission Date: 20240110
  Serious: No
  Sender: FDA-Public Use
  Company Number: US-ROCHE-3445996

PATIENT
  Age: 53 Year
  Sex: Female
  Weight: 52.664 kg

DRUGS (7)
  1. OCREVUS [Suspect]
     Active Substance: OCRELIZUMAB
     Indication: Relapsing-remitting multiple sclerosis
     Dosage: YES
     Route: 042
     Dates: start: 202205
  2. GABAPENTIN [Concomitant]
     Active Substance: GABAPENTIN
  3. CYMBALTA [Concomitant]
     Active Substance: DULOXETINE HYDROCHLORIDE
  4. ARMODAFINIL [Concomitant]
     Active Substance: ARMODAFINIL
  5. TOPIRAMATE [Concomitant]
     Active Substance: TOPIRAMATE
  6. LISINOPRIL [Concomitant]
     Active Substance: LISINOPRIL
  7. PANTOPRAZOLE [Concomitant]
     Active Substance: PANTOPRAZOLE

REACTIONS (3)
  - Neuralgia [Not Recovered/Not Resolved]
  - COVID-19 [Unknown]
  - Vibratory sense increased [Unknown]

NARRATIVE: CASE EVENT DATE: 20221101
